FAERS Safety Report 15234038 (Version 1)
Quarter: 2018Q3

REPORT INFORMATION
  Report Type: Report from Study
  Country: MX (occurrence: MX)
  Receive Date: 20180802
  Receipt Date: 20180802
  Transmission Date: 20181010
  Serious: Yes (Hospitalization, Disabling, Other)
  Sender: FDA-Public Use
  Company Number: MX-SA-2018SA202091

PATIENT
  Age: 40 Year
  Sex: Male
  Weight: 80.5 kg

DRUGS (1)
  1. INSULIN GLARGINE [Suspect]
     Active Substance: INSULIN GLARGINE
     Indication: TYPE 1 DIABETES MELLITUS
     Dosage: 18 TO 22 IU, QD
     Route: 058
     Dates: start: 201802

REACTIONS (1)
  - Retinal detachment [Recovering/Resolving]

NARRATIVE: CASE EVENT DATE: 201806
